FAERS Safety Report 9668776 (Version 1)
Quarter: 2013Q4

REPORT INFORMATION
  Report Type: Spontaneous
  Country: US (occurrence: US)
  Receive Date: 20131105
  Receipt Date: 20131105
  Transmission Date: 20140711
  Serious: No
  Sender: FDA-Public Use
  Company Number: US-JNJFOC-20131015853

PATIENT
  Age: 65 Year
  Sex: Female
  Weight: 82.1 kg

DRUGS (8)
  1. DURAGESIC [Suspect]
     Indication: NEUROPATHY PERIPHERAL
     Route: 062
     Dates: start: 20131024, end: 20131024
  2. DURAGESIC [Suspect]
     Indication: FIBROMYALGIA
     Route: 062
     Dates: start: 20131024, end: 20131024
  3. DURAGESIC [Suspect]
     Indication: NEURALGIA
     Route: 062
     Dates: start: 20131024, end: 20131024
  4. OXYCODONE HCL [Concomitant]
     Indication: PAIN
     Route: 048
     Dates: start: 2012
  5. KLONOPIN [Concomitant]
     Indication: ANXIETY
     Dosage: ONCE AT NIGHT
     Route: 065
     Dates: start: 2012
  6. PRISTIQ [Concomitant]
     Indication: DEPRESSION
     Route: 048
     Dates: start: 2011
  7. ABILIFY [Concomitant]
     Indication: DEPRESSION
     Route: 065
     Dates: start: 201309
  8. ABILIFY [Concomitant]
     Indication: ANXIETY
     Route: 065
     Dates: start: 201309

REACTIONS (5)
  - Expired drug administered [Recovered/Resolved]
  - Drug dispensing error [Unknown]
  - Inappropriate schedule of drug administration [Unknown]
  - Thinking abnormal [Not Recovered/Not Resolved]
  - Dyspnoea [Not Recovered/Not Resolved]
